FAERS Safety Report 4711603-9 (Version None)
Quarter: 2005Q3

REPORT INFORMATION
  Report Type: 
  Country: None (occurrence: None)
  Receive Date: 20050712
  Receipt Date: 20050627
  Transmission Date: 20060218
  Serious: Yes (Life-Threatening, Other)
  Sender: FDA-Public Use
  Company Number: JP-JNJFOC-20050607647

PATIENT
  Age: 41 Year
  Sex: Male

DRUGS (4)
  1. MICONAZOLE [Suspect]
     Route: 050
     Dates: start: 20050426, end: 20050426
  2. NAFAMOSTAT MESILATE [Concomitant]
     Route: 065
  3. CITICOLINE [Concomitant]
     Route: 065
  4. CEFPIROME SULFATE [Concomitant]
     Route: 065

REACTIONS (2)
  - CHILLS [None]
  - DYSPNOEA [None]
